FAERS Safety Report 9547581 (Version 1)
Quarter: 2013Q3

REPORT INFORMATION
  Report Type: Report from Study
  Country: DE (occurrence: DE)
  Receive Date: 20130924
  Receipt Date: 20130924
  Transmission Date: 20140515
  Serious: Yes (Hospitalization)
  Sender: FDA-Public Use
  Company Number: DE-ROCHE-1276548

PATIENT
  Sex: Female
  Weight: 56 kg

DRUGS (6)
  1. BEVACIZUMAB [Suspect]
     Indication: OVARIAN CANCER
     Dosage: LAST DOSE PRIOR TO SAE ON 21/AUG/2013
     Route: 042
     Dates: start: 20130606
  2. CARBOPLATIN [Suspect]
     Indication: OVARIAN CANCER
     Dosage: LAST DOSE PRIOR TO SAE ON 21/AUG/2013
     Route: 042
     Dates: start: 20130516
  3. PACLITAXEL [Suspect]
     Indication: OVARIAN CANCER
     Dosage: LAST DOSE PRIOR TO SAE ON 21/AUG/2013
     Route: 042
     Dates: start: 20130516
  4. NOVAMINE [Concomitant]
     Indication: PAIN
     Dosage: LAST DOSE PRIOR TO SAE ON 30/AUG/2013
     Route: 048
     Dates: start: 20130825
  5. BUSCOPAN [Concomitant]
     Indication: PAIN
     Dosage: LAST DOSE PRIOR TO SAE ON 30/AUG/2013
     Route: 042
     Dates: start: 20130825
  6. DURAGESIC [Concomitant]
     Indication: PAIN
     Route: 065
     Dates: start: 20130828

REACTIONS (1)
  - General physical health deterioration [Recovered/Resolved]
